FAERS Safety Report 5762087-3 (Version None)
Quarter: 2008Q2

REPORT INFORMATION
  Report Type: 
  Country: None (occurrence: None)
  Receive Date: 20080604
  Receipt Date: 20080519
  Transmission Date: 20081010
  Serious: Yes (Hospitalization)
  Sender: FDA-Public Use
  Company Number: B0522612A

PATIENT
  Age: 36 Year
  Sex: Male

DRUGS (7)
  1. AMOXICILLIN + CLAVULANATE POTASSIUM [Suspect]
     Indication: PHARYNGOLARYNGEAL PAIN
     Dosage: 1 GRAM(S) / THREE TIMES PER DAY /
  2. LAMOTRIGINE [Concomitant]
  3. VENLAFAXINE HYDROCHLORIDE [Concomitant]
  4. VITAMIN B [Concomitant]
  5. TIAPRIDE [Concomitant]
  6. CALCIUM SALT [Concomitant]
  7. KETAZOLAM [Concomitant]

REACTIONS (19)
  - ALANINE AMINOTRANSFERASE INCREASED [None]
  - ASPARTATE AMINOTRANSFERASE INCREASED [None]
  - ASTHENIA [None]
  - BILIRUBIN CONJUGATED INCREASED [None]
  - BLOOD ALKALINE PHOSPHATASE INCREASED [None]
  - BLOOD BILIRUBIN INCREASED [None]
  - CANDIDIASIS [None]
  - CHOLURIA [None]
  - DYSPHAGIA [None]
  - ERYTHEMA MULTIFORME [None]
  - FUNGAL OESOPHAGITIS [None]
  - HEPATIC NECROSIS [None]
  - HEPATITIS CHOLESTATIC [None]
  - ODYNOPHAGIA [None]
  - PROTHROMBIN LEVEL DECREASED [None]
  - PRURITUS [None]
  - PYREXIA [None]
  - SELF-MEDICATION [None]
  - WHITE BLOOD CELL COUNT INCREASED [None]
